FAERS Safety Report 10136954 (Version 1)
Quarter: 2014Q2

REPORT INFORMATION
  Report Type: Spontaneous
  Country: US (occurrence: None)
  Receive Date: 20140425
  Receipt Date: 20140425
  Transmission Date: 20141212
  Serious: Yes (Hospitalization)
  Sender: FDA-Public Use
  Company Number: UTC-047457

PATIENT
  Age: 75 Year
  Sex: Female

DRUGS (1)
  1. REMODULIN [Suspect]
     Indication: PULMONARY ARTERIAL HYPERTENSION
     Dosage: 0.042 TO 0.044 UG/KG (1 IN 1 MIN),INTRAVENOUS DRIP
     Route: 041
     Dates: start: 20140205

REACTIONS (2)
  - Dyspnoea [None]
  - Oedema peripheral [None]
